FAERS Safety Report 9655896 (Version 2)
Quarter: 2013Q4

REPORT INFORMATION
  Report Type: Report from Study
  Country: CA (occurrence: CA)
  Receive Date: 20131030
  Receipt Date: 20131106
  Transmission Date: 20140711
  Serious: Yes (Other)
  Sender: FDA-Public Use
  Company Number: CA-ROCHE-1296681

PATIENT
  Age: 68 Year
  Sex: Female
  Weight: 81 kg

DRUGS (7)
  1. ACTEMRA [Suspect]
     Indication: RHEUMATOID ARTHRITIS
     Route: 042
     Dates: start: 20130912
  2. CLONAZEPAM [Concomitant]
  3. DETROL [Concomitant]
  4. ARAVA [Concomitant]
     Route: 065
  5. TECTA [Concomitant]
  6. MIRTAZAPINE [Concomitant]
  7. VITAMIN B50 [Concomitant]

REACTIONS (2)
  - Foot fracture [Unknown]
  - Cellulitis [Recovered/Resolved]
